FAERS Safety Report 20708865 (Version 2)
Quarter: 2022Q3

REPORT INFORMATION
  Report Type: Report from Study
  Country: BR (occurrence: BR)
  Receive Date: 20220414
  Receipt Date: 20220929
  Transmission Date: 20221027
  Serious: Yes (Other)
  Sender: FDA-Public Use
  Company Number: BR-JNJFOC-20220420578

PATIENT
  Age: 6 Decade
  Sex: Male
  Weight: 79 kg

DRUGS (2)
  1. REMICADE [Suspect]
     Active Substance: INFLIXIMAB
     Indication: Psoriatic arthropathy
     Dosage: 2 TO 4 VIALS ON WEEKS 0, 2 AND EVERY 4 WEEKS
     Route: 041
  2. REMICADE [Suspect]
     Active Substance: INFLIXIMAB
     Indication: Psoriasis

REACTIONS (6)
  - Psoriatic arthropathy [Unknown]
  - Infusion related reaction [Unknown]
  - Hypersensitivity [Unknown]
  - COVID-19 [Unknown]
  - Off label use [Unknown]
  - Product use issue [Unknown]

NARRATIVE: CASE EVENT DATE: 20210101
